FAERS Safety Report 23621269 (Version 1)
Quarter: 2024Q1

REPORT INFORMATION
  Report Type: Spontaneous
  Country: HU (occurrence: HU)
  Receive Date: 20240312
  Receipt Date: 20240312
  Transmission Date: 20240409
  Serious: Yes (Other)
  Sender: FDA-Public Use
  Company Number: HU-EMADD-202402147482831113258

PATIENT
  Age: 35 Year
  Sex: Female

DRUGS (13)
  1. CISPLATIN [Suspect]
     Active Substance: CISPLATIN
     Indication: Follicular lymphoma
     Dosage: CYCLE 4
  2. CYCLOPHOSPHAMIDE [Suspect]
     Active Substance: CYCLOPHOSPHAMIDE
     Indication: High-grade B-cell lymphoma
     Dosage: UNK, CYCLIC (50-50 PERCENT ON THE FIRST AND THE SECOND DAY, 1ST RCHOP CYCLE)
     Dates: start: 20210610
  3. CYTARABINE [Suspect]
     Active Substance: CYTARABINE
     Indication: Prophylaxis against transplant rejection
     Dosage: CYCLE 4
  4. DOXORUBICIN HYDROCHLORIDE [Suspect]
     Active Substance: DOXORUBICIN HYDROCHLORIDE
     Indication: High-grade B-cell lymphoma
     Dosage: UNK, CYCLIC (INFUSION, ON THE THIRD DAY, 1ST RCHOP CYCLE)/ON 2ND DAY
     Dates: start: 20210610
  5. PREDNISOLONE [Suspect]
     Active Substance: PREDNISOLONE
     Indication: Follicular lymphoma
     Dosage: UNK, CYCLIC (1ST RCHOP CYCLE)
     Dates: start: 20210610
  6. VINCRISTINE [Suspect]
     Active Substance: VINCRISTINE
     Indication: High-grade B-cell lymphoma
     Dosage: UNK, CYCLIC (INFUSION, ON THE THIRD DAY, 1ST RCHOP CYCLE)
     Dates: start: 20210610
  7. DEXAMETHASONE [Suspect]
     Active Substance: DEXAMETHASONE
     Indication: Follicular lymphoma
     Dosage: CYCLE 4
  8. OBINUTUZUMAB [Suspect]
     Active Substance: OBINUTUZUMAB
     Indication: Follicular lymphoma
     Dosage: CYCLE 4
  9. RITUXIMAB [Suspect]
     Active Substance: RITUXIMAB
     Indication: Follicular lymphoma
     Dosage: UNK, CYCLIC (INFUSION, 1ST RCHOP CYCLE) (500 ML)
     Dates: start: 20210610
  10. RASBURICASE [Concomitant]
     Active Substance: RASBURICASE
     Indication: Prophylaxis
     Dosage: UNK
  11. CARMUSTINE [Concomitant]
     Active Substance: CARMUSTINE
     Indication: Prophylaxis against transplant rejection
  12. MELPHALAN [Concomitant]
     Active Substance: MELPHALAN
     Indication: Prophylaxis against transplant rejection
  13. ETOPOSIDE [Concomitant]
     Active Substance: ETOPOSIDE
     Indication: Prophylaxis against transplant rejection

REACTIONS (7)
  - Follicular lymphoma [Recovered/Resolved]
  - Chills [Unknown]
  - Tremor [Unknown]
  - Pyrexia [Recovered/Resolved]
  - Hypertensive crisis [Recovered/Resolved]
  - Malignant neoplasm progression [Recovered/Resolved]
  - Off label use [Unknown]

NARRATIVE: CASE EVENT DATE: 20210101
